FAERS Safety Report 5504596-8 (Version None)
Quarter: 2007Q4

REPORT INFORMATION
  Report Type: 
  Country: None (occurrence: None)
  Receive Date: 20071101
  Receipt Date: 20071025
  Transmission Date: 20080405
  Serious: Yes (Hospitalization)
  Sender: FDA-Public Use
  Company Number: BE-ROXANE LABORATORIES, INC-2007-BP-23474RO

PATIENT
  Age: 15 Year
  Sex: Female

DRUGS (5)
  1. CLARITHROMYCIN [Suspect]
     Indication: HELICOBACTER GASTRITIS
  2. TACROLIMUS [Suspect]
     Indication: IMMUNOSUPPRESSION
  3. AMOXICILLIN [Suspect]
     Indication: HELICOBACTER GASTRITIS
  4. OMEPRAZOLE [Suspect]
     Indication: HELICOBACTER GASTRITIS
  5. METRONIDAZOLE [Concomitant]
     Indication: HELICOBACTER GASTRITIS

REACTIONS (8)
  - CONVULSION [None]
  - DEHYDRATION [None]
  - DIARRHOEA [None]
  - DRUG INTERACTION [None]
  - IMMUNOSUPPRESSANT DRUG LEVEL INCREASED [None]
  - OLIGURIA [None]
  - RENAL IMPAIRMENT [None]
  - VOMITING [None]
